FAERS Safety Report 14023551 (Version 1)
Quarter: 2017Q3

REPORT INFORMATION
  Report Type: Spontaneous
  Country: US (occurrence: US)
  Receive Date: 20170928
  Receipt Date: 20170928
  Transmission Date: 20171128
  Serious: No
  Sender: FDA-Public Use
  Company Number: US-SA-2016SA219061

PATIENT
  Age: 64 Year
  Sex: Female

DRUGS (7)
  1. FLUOXETINE [Concomitant]
     Active Substance: FLUOXETINE HYDROCHLORIDE
     Route: 065
  2. AUBAGIO [Suspect]
     Active Substance: TERIFLUNOMIDE
     Indication: MULTIPLE SCLEROSIS
     Route: 048
     Dates: start: 20161004
  3. PRAVASTATIN. [Concomitant]
     Active Substance: PRAVASTATIN
     Route: 065
  4. DONEPEZIL. [Concomitant]
     Active Substance: DONEPEZIL
     Route: 065
  5. AUBAGIO [Suspect]
     Active Substance: TERIFLUNOMIDE
     Indication: MULTIPLE SCLEROSIS
     Dosage: PATIENT IS NOT TAKING TERIFLUNOMIDE EVERY DAY
     Route: 048
     Dates: start: 2016
  6. AMOXICILLIN. [Concomitant]
     Active Substance: AMOXICILLIN
     Route: 065
  7. BETASERON [Concomitant]
     Active Substance: INTERFERON BETA-1B
     Route: 065

REACTIONS (3)
  - Diarrhoea [Not Recovered/Not Resolved]
  - Tension headache [Not Recovered/Not Resolved]
  - Product use issue [Unknown]

NARRATIVE: CASE EVENT DATE: 2016
